FAERS Safety Report 7514426-0 (Version None)
Quarter: 2011Q2

REPORT INFORMATION
  Report Type: 
  Country: None (occurrence: None)
  Receive Date: 20110601
  Receipt Date: 20110418
  Transmission Date: 20111010
  Serious: Yes (Other)
  Sender: FDA-Public Use
  Company Number: KR-JNJFOC-20110409600

PATIENT
  Sex: Male

DRUGS (3)
  1. ULTRACET [Suspect]
     Dosage: 1.5 TAB IN THE MOR, 1 IN NOON AND 1.5 TAB IN EVE (APAP 325 MG PLUS TRAMADOL HCL 37.5 MG) 3 A DAY
     Route: 048
     Dates: start: 20110401
  2. SLEEPING PILL NOS [Concomitant]
     Indication: SLEEP DISORDER
     Dosage: AT PM
     Route: 048
  3. ULTRACET [Suspect]
     Indication: ARTHRALGIA
     Dosage: 2 TABLETS (ACETAMINOPHEN 325 MG PLUS TRAMADOL HYDROCHLORIDE 37.5 MG) THRICE A DAY
     Route: 048
     Dates: start: 20110319, end: 20110401

REACTIONS (5)
  - TREATMENT NONCOMPLIANCE [None]
  - SENSORY DISTURBANCE [None]
  - DIZZINESS [None]
  - DEAFNESS [None]
  - VISION BLURRED [None]
